FAERS Safety Report 9398416 (Version 1)
Quarter: 2013Q3

REPORT INFORMATION
  Report Type: Spontaneous
  Country: PL (occurrence: PL)
  Receive Date: 20130712
  Receipt Date: 20130712
  Transmission Date: 20140515
  Serious: Yes (Hospitalization, Other)
  Sender: FDA-Public Use
  Company Number: PL-PFIZER INC-2013201207

PATIENT
  Age: 71 Year
  Sex: Female

DRUGS (7)
  1. SUNITINIB MALATE [Suspect]
     Indication: METASTATIC RENAL CELL CARCINOMA
     Dosage: 50 MG DAILY
  2. SUNITINIB MALATE [Suspect]
     Dosage: 37.5 MG DAILY FOR 4 WEEKS EVERY 6 WEEKS
  3. LEVETIRACETAM [Suspect]
     Indication: CONVULSION
     Dosage: 1500 MG/DAY
  4. VALPROATE [Suspect]
     Indication: CONVULSION PROPHYLAXIS
     Dosage: 800 MG/DAY
  5. VALPROATE [Suspect]
     Dosage: 2000 MG/DAY
  6. BISOPROLOL FUMARATE [Concomitant]
     Indication: HYPERTENSION
     Dosage: 2.5 MG DAILY
  7. AMLODIPINE BESILATE [Concomitant]
     Indication: HYPERTENSION
     Dosage: 2X5 MG, UNK

REACTIONS (4)
  - Convulsion [Recovered/Resolved]
  - Hyponatraemia [Recovered/Resolved]
  - Hypertension [Unknown]
  - Aphasia [Recovered/Resolved]
